FAERS Safety Report 14650777 (Version 1)
Quarter: 2018Q1

REPORT INFORMATION
  Report Type: Report from Study
  Country: US (occurrence: US)
  Receive Date: 20180316
  Receipt Date: 20180316
  Transmission Date: 20180509
  Serious: Yes (Other)
  Sender: FDA-Public Use
  Company Number: US-ACTELION-A-NJ2018-167989

PATIENT
  Age: 51 Year
  Sex: Female

DRUGS (2)
  1. OPSUMIT [Suspect]
     Active Substance: MACITENTAN
     Indication: PULMONARY ARTERIAL HYPERTENSION
     Dosage: 10 MG, UNK
     Route: 048
     Dates: start: 20160624, end: 20180115
  2. OPSUMIT [Suspect]
     Active Substance: MACITENTAN
     Dosage: 10 MG, QD
     Route: 048
     Dates: start: 20160820, end: 201712

REACTIONS (5)
  - Diarrhoea [Recovered/Resolved]
  - Therapy non-responder [Unknown]
  - Thrombosis [Unknown]
  - Gastrointestinal pain [Unknown]
  - Contusion [Unknown]
